FAERS Safety Report 17823934 (Version 1)
Quarter: 2020Q2

REPORT INFORMATION
  Report Type: Spontaneous
  Country: US (occurrence: US)
  Receive Date: 20200526
  Receipt Date: 20200526
  Transmission Date: 20200714
  Serious: No
  Sender: FDA-Public Use
  Company Number: US-EMCURE PHARMACEUTICALS LTD-2020-EPL-000615

PATIENT

DRUGS (1)
  1. INDOMETHACIN. [Suspect]
     Active Substance: INDOMETHACIN
     Indication: PAIN
     Dosage: 25 MILLIGRAM, PRN, 2 CAPSULES DAILY, SINCE 4 YEAR AGO OR SO
     Route: 048

REACTIONS (1)
  - Blood glucose increased [Not Recovered/Not Resolved]
